FAERS Safety Report 7644458-3 (Version None)
Quarter: 2011Q3

REPORT INFORMATION
  Report Type: 
  Country: None (occurrence: None)
  Receive Date: 20110725
  Receipt Date: 20110707
  Transmission Date: 20111222
  Serious: Yes (Disabling, Other)
  Sender: FDA-Public Use
  Company Number: AUR-APL-2011-03994

PATIENT
  Age: 43 Year
  Sex: Female
  Weight: 141.6 kg

DRUGS (7)
  1. ERYTHROMYCIN [Concomitant]
  2. SIMVASTATIN [Suspect]
     Indication: PRODUCT USED FOR UNKNOWN INDICATION
     Dates: start: 20110316
  3. AMITRIPTYLINE HYDROCHLORIDE [Suspect]
  4. CO-CODAMOL (PANADEINE CO) [Concomitant]
  5. QUININE SULFATE [Concomitant]
  6. CANDESARTAN CILEXETIL [Concomitant]
  7. METFORMIN HCL [Concomitant]

REACTIONS (2)
  - PAIN IN EXTREMITY [None]
  - MYALGIA [None]
